FAERS Safety Report 17505528 (Version 1)
Quarter: 2020Q1

REPORT INFORMATION
  Report Type: Spontaneous
  Country: RU (occurrence: RU)
  Receive Date: 20200306
  Receipt Date: 20200306
  Transmission Date: 20200409
  Serious: Yes (Other)
  Sender: FDA-Public Use
  Company Number: RU-TEVA-2020-RU-1194345

PATIENT
  Age: 11 Year
  Sex: Female
  Weight: 40 kg

DRUGS (1)
  1. TOPSAVER [Suspect]
     Active Substance: TOPIRAMATE
     Indication: EPILEPSY
     Dosage: 200 MILLIGRAM DAILY;
     Route: 048
     Dates: start: 20171007, end: 20171008

REACTIONS (1)
  - Dermatitis atopic [Recovered/Resolved]

NARRATIVE: CASE EVENT DATE: 20171007
